FAERS Safety Report 25431506 (Version 1)
Quarter: 2025Q2

REPORT INFORMATION
  Report Type: Spontaneous
  Country: GB (occurrence: GB)
  Receive Date: 20250613
  Receipt Date: 20250613
  Transmission Date: 20250717
  Serious: Yes (Life-Threatening, Other)
  Sender: B BRAUN
  Company Number: GB-B.Braun Medical Inc.-2178450

PATIENT
  Sex: Female

DRUGS (10)
  1. CALCIUM GLUCONATE [Suspect]
     Active Substance: CALCIUM GLUCONATE
  2. LETROZOLE [Suspect]
     Active Substance: LETROZOLE
  3. KISQALI [Suspect]
     Active Substance: RIBOCICLIB SUCCINATE
  4. PREDNISOLONE [Suspect]
     Active Substance: PREDNISOLONE
  5. DENOSUMAB [Suspect]
     Active Substance: DENOSUMAB
  6. SERTRALINE [Suspect]
     Active Substance: SERTRALINE HYDROCHLORIDE
  7. OMEPRAZOLE [Suspect]
     Active Substance: OMEPRAZOLE
  8. GOSERELIN [Suspect]
     Active Substance: GOSERELIN
  9. VITAMIN D [Suspect]
     Active Substance: VITAMIN D NOS
  10. AMITRIPTYLINE [Suspect]
     Active Substance: AMITRIPTYLINE

REACTIONS (1)
  - Hepatotoxicity [Unknown]
